FAERS Safety Report 21980419 (Version 1)
Quarter: 2023Q1

REPORT INFORMATION
  Report Type: Spontaneous
  Country: FR (occurrence: FR)
  Receive Date: 20230211
  Receipt Date: 20230211
  Transmission Date: 20230417
  Serious: Yes (Death, Life-Threatening, Hospitalization, Other)
  Sender: FDA-Public Use
  Company Number: None

PATIENT
  Age: 66 Year
  Sex: Female

DRUGS (1)
  1. KYPROLIS [Suspect]
     Active Substance: CARFILZOMIB
     Indication: Plasma cell myeloma
     Dosage: 114 MILLIGRAM, CYCLICAL
     Route: 040
     Dates: start: 20221017, end: 20221220

REACTIONS (2)
  - Thrombotic microangiopathy [Recovering/Resolving]
  - Multiple organ dysfunction syndrome [Fatal]

NARRATIVE: CASE EVENT DATE: 20221224
